FAERS Safety Report 9520796 (Version 2)
Quarter: 2013Q4

REPORT INFORMATION
  Report Type: Spontaneous
  Country: DE (occurrence: DE)
  Receive Date: 20130913
  Receipt Date: 20131128
  Transmission Date: 20140711
  Serious: Yes (Hospitalization)
  Sender: FDA-Public Use
  Company Number: DE-ALEXION PHARMACEUTICALS INC.-A201302181

PATIENT
  Age: 40 Year
  Sex: Female
  Weight: 106.5 kg

DRUGS (12)
  1. SOLIRIS 300MG [Suspect]
     Indication: HAEMOLYTIC URAEMIC SYNDROME
     Dosage: 900 MG, QW
     Route: 042
     Dates: start: 20130628, end: 20130719
  2. SOLIRIS 300MG [Suspect]
     Indication: OFF LABEL USE
     Dosage: 1200 MG, SINGLE
     Route: 042
     Dates: start: 20130731, end: 20130731
  3. CLONIDINE [Concomitant]
     Dosage: 250 MG, TID
     Route: 048
  4. LEVETIRACETAM [Concomitant]
     Dosage: 750 MG, BID
     Route: 048
  5. PANTOPRAZOLE [Concomitant]
     Dosage: 40 MG, QD
     Route: 048
  6. CARVEDILOL [Concomitant]
     Dosage: 25 MG, QD
     Route: 048
  7. LEVOFLOXACIN [Concomitant]
     Dosage: 125 MG, QD
     Route: 048
  8. MINOXIDIL [Concomitant]
     Dosage: 2.5 MG, TID
     Route: 048
  9. PREDNISOLONE [Concomitant]
     Dosage: 20 MG, QD
     Route: 048
  10. TORSEMIDE [Concomitant]
     Dosage: 100 MG, QD
     Route: 048
  11. CALCIDIOLE [Concomitant]
     Dosage: UNK, 2 X W
     Route: 048
  12. NAHCO3 [Concomitant]
     Dosage: UNK, 4 X W, WHEN NO DIALYSIS
     Route: 048

REACTIONS (6)
  - Staphylococcal infection [Recovering/Resolving]
  - Myocardial infarction [Recovered/Resolved]
  - Coronary artery dissection [Recovered/Resolved]
  - Epilepsy [Unknown]
  - Coronary artery disease [Unknown]
  - Off label use [Recovered/Resolved]
